FAERS Safety Report 7113415-8 (Version None)
Quarter: 2010Q4

REPORT INFORMATION
  Report Type: 
  Country: None (occurrence: None)
  Receive Date: 20101119
  Receipt Date: 20100923
  Transmission Date: 20110411
  Serious: No
  Sender: FDA-Public Use
  Company Number: A0878528A

PATIENT
  Age: 70 Year
  Sex: Male

DRUGS (2)
  1. ARZERRA [Suspect]
     Route: 042
     Dates: start: 20100721, end: 20100905
  2. UNKNOWN [Concomitant]

REACTIONS (2)
  - DISEASE PROGRESSION [None]
  - PLATELET COUNT DECREASED [None]
